FAERS Safety Report 19091620 (Version 2)
Quarter: 2021Q2

REPORT INFORMATION
  Report Type: Spontaneous
  Country: RU (occurrence: RU)
  Receive Date: 20210405
  Receipt Date: 20210414
  Transmission Date: 20210717
  Serious: Yes (Hospitalization)
  Sender: FDA-Public Use
  Company Number: NVSC2021RU071004

PATIENT
  Sex: Male

DRUGS (3)
  1. CANAKINUMAB. [Suspect]
     Active Substance: CANAKINUMAB
     Dosage: 6 MG/KG (75 MG), Q4W
     Route: 065
     Dates: start: 201907, end: 201907
  2. CANAKINUMAB. [Suspect]
     Active Substance: CANAKINUMAB
     Indication: HYPER IGD SYNDROME
     Dosage: 3 MG/KG (25 MG), Q4W
     Route: 058
     Dates: start: 201903, end: 201907
  3. CANAKINUMAB. [Suspect]
     Active Substance: CANAKINUMAB
     Dosage: 13 MG/KG, Q4W (150 MG)
     Route: 065
     Dates: start: 201907

REACTIONS (4)
  - Colonic abscess [Recovered/Resolved]
  - Constipation [Recovered/Resolved]
  - Off label use [Recovered/Resolved]
  - Drug ineffective [Recovered/Resolved]

NARRATIVE: CASE EVENT DATE: 201903
